FAERS Safety Report 4280648-8 (Version None)
Quarter: 2004Q1

REPORT INFORMATION
  Report Type: 
  Country: None (occurrence: None)
  Receive Date: 20040123
  Receipt Date: 20040108
  Transmission Date: 20041129
  Serious: Yes (Hospitalization)
  Sender: FDA-Public Use
  Company Number: CAN-2004-0000112

PATIENT
  Age: 56 Year
  Sex: Male

DRUGS (13)
  1. MS CONTIN [Suspect]
     Indication: PAIN
     Dosage: 30 MG, BID
  2. STEMETIL TABLET (PROCLORPERAZINE MALEATE) [Suspect]
     Indication: NAUSEA
     Dosage: 10 MG, QID
  3. ELAVIL [Suspect]
     Indication: PAIN
     Dosage: 25 MG, HS,
  4. ELAVIL [Suspect]
     Indication: SLEEP DISORDER
     Dosage: 25 MG, HS,
  5. MORPHINE SULFATE [Suspect]
     Indication: PAIN
     Dosage: 10 MG PRN
  6. GRAVOL TAB [Concomitant]
  7. INSULIN [Concomitant]
  8. METFORMIN HCL [Concomitant]
  9. VIOKASE (PANCRELIPASE) [Concomitant]
  10. DOMPERIDONE (DOMPERIDONE) [Concomitant]
  11. DILAUDID [Concomitant]
  12. DURAGEISIC (FENTANYL) [Concomitant]
  13. INSULIN LENTE (INSULIN ZINC SUSPENSION) [Concomitant]

REACTIONS (6)
  - CONVULSION [None]
  - FEELING ABNORMAL [None]
  - HYPOGLYCAEMIA [None]
  - JOINT DISLOCATION [None]
  - LOSS OF CONSCIOUSNESS [None]
  - SPEECH DISORDER [None]
